FAERS Safety Report 6526034-9 (Version None)
Quarter: 2010Q1

REPORT INFORMATION
  Report Type: 
  Country: None (occurrence: None)
  Receive Date: 20100104
  Receipt Date: 20091222
  Transmission Date: 20100710
  Serious: Yes (Other)
  Sender: FDA-Public Use
  Company Number: JP-PFIZER INC-2009313379

PATIENT
  Age: 54 Year
  Sex: Male

DRUGS (8)
  1. ZYVOX [Suspect]
     Indication: OSTEOMYELITIS
     Dosage: 600 MG, 2X/DAY
     Route: 048
     Dates: start: 20091211
  2. AMARYL [Concomitant]
  3. ALLOPURINOL [Concomitant]
  4. CALCIUM POLYSTYRENE SULFONATE [Concomitant]
  5. MUCOSTA [Concomitant]
  6. BIOFERMIN [Concomitant]
  7. LOXONIN [Concomitant]
  8. LENDORMIN [Concomitant]

REACTIONS (1)
  - HYPOGLYCAEMIA [None]
